FAERS Safety Report 17422927 (Version 3)
Quarter: 2020Q2

REPORT INFORMATION
  Report Type: Spontaneous
  Country: RU (occurrence: RU)
  Receive Date: 20200216
  Receipt Date: 20200424
  Transmission Date: 20200713
  Serious: Yes (Other)
  Sender: FDA-Public Use
  Company Number: RU-BIOGEN-2020BI00838227

PATIENT
  Age: 29 Year
  Sex: Female
  Weight: 40 kg

DRUGS (3)
  1. PLEGRIDY [Suspect]
     Active Substance: PEGINTERFERON BETA-1A
     Dosage: 63 MCG, 94 MCG AND 125 MCG
     Route: 065
  2. PLEGRIDY [Suspect]
     Active Substance: PEGINTERFERON BETA-1A
     Dosage: 63 MCG, 94 MCG AND 125 MCG
     Route: 065
  3. PLEGRIDY [Suspect]
     Active Substance: PEGINTERFERON BETA-1A
     Indication: MULTIPLE SCLEROSIS
     Dosage: 63 MCG, 94 MCG AND 125 MCG
     Route: 065
     Dates: start: 20191215, end: 20200112

REACTIONS (4)
  - Influenza like illness [Unknown]
  - Paraesthesia [Unknown]
  - Pyrexia [Not Recovered/Not Resolved]
  - Lymphadenopathy [Recovered/Resolved]

NARRATIVE: CASE EVENT DATE: 20200114
